FAERS Safety Report 13184276 (Version 3)
Quarter: 2017Q1

REPORT INFORMATION
  Report Type: Spontaneous
  Country: PT (occurrence: PT)
  Receive Date: 20170203
  Receipt Date: 20170308
  Transmission Date: 20170428
  Serious: Yes (Other)
  Sender: FDA-Public Use
  Company Number: PT-ASTRAZENECA-2017SE10951

PATIENT
  Age: 45 Year
  Sex: Female

DRUGS (4)
  1. MONTELUKAST [Concomitant]
     Active Substance: MONTELUKAST SODIUM
     Route: 065
  2. SYMBICORT [Suspect]
     Active Substance: BUDESONIDE\FORMOTEROL FUMARATE DIHYDRATE
     Dosage: (320/9 MCG)/DOSE, ONE INHALATION PER DAY
     Route: 055
  3. SYMBICORT [Suspect]
     Active Substance: BUDESONIDE\FORMOTEROL FUMARATE DIHYDRATE
     Dosage: 160 MCG, UNKNOWN
     Route: 055
  4. SYMBICORT [Suspect]
     Active Substance: BUDESONIDE\FORMOTEROL FUMARATE DIHYDRATE
     Dosage: (320/9 MCG)/DOSE,1 INHALATION 2X DAY
     Route: 055

REACTIONS (3)
  - Drug ineffective [Recovered/Resolved]
  - Asthma [Recovered/Resolved]
  - Device malfunction [Unknown]
